FAERS Safety Report 4462348-4 (Version None)
Quarter: 2004Q3

REPORT INFORMATION
  Report Type: 
  Country: None (occurrence: None)
  Receive Date: 20040924
  Receipt Date: 20040120
  Transmission Date: 20050211
  Serious: Yes (Hospitalization)
  Sender: FDA-Public Use
  Company Number: TRP_0010_2004

PATIENT
  Age: 21 Year
  Sex: Female
  Weight: 53.978 kg

DRUGS (17)
  1. RIBAVIRIN [Suspect]
     Indication: HEPATITIS C
     Dosage: 400 MG BID PO
     Route: 048
     Dates: start: 20040108, end: 20040117
  2. RIBAVIRIN [Suspect]
     Indication: HEPATITIS C
     Dosage: DF PO
     Route: 048
     Dates: start: 20040130
  3. RIBAVIRIN [Suspect]
     Indication: HEPATITIS C
     Dosage: 1000 MG QDAY PO
     Route: 048
     Dates: start: 20031105, end: 20031219
  4. RIBAVIRIN [Suspect]
     Indication: HEPATITIS C
     Dosage: 400 MG QDAY PO
     Route: 048
     Dates: start: 20040111, end: 20040117
  5. RIBAVIRIN [Suspect]
     Indication: HEPATITIS C
     Dosage: 600 MG QDAY PO
     Route: 048
     Dates: start: 20031219, end: 20040108
  6. INTERFERON ALFA-1/INFERGEN/INTERMUNE/15MCG [Suspect]
     Indication: HEPATITIS C
     Dosage: 12 MCG 3XWK SCS
     Route: 058
     Dates: start: 20040115, end: 20040117
  7. INTERFERON ALFA-1/INFERGEN/INTERMUNE/15MCG [Suspect]
     Indication: HEPATITIS C
     Dosage: DF SC
     Route: 058
     Dates: start: 20040130
  8. INTERFERON ALFA-1/INFERGEN/INTERMUNE/15MCG [Suspect]
     Indication: HEPATITIS C
     Dosage: 15 MCG 3XWK SC
     Route: 058
     Dates: start: 20031105, end: 20040115
  9. PROCRIT [Concomitant]
  10. ALESSE [Concomitant]
  11. TYLENOL PM [Concomitant]
  12. VITAMIN C [Concomitant]
  13. VITAMIN E [Concomitant]
  14. ST MARY'S THISTLE [Concomitant]
  15. ADVIL [Concomitant]
  16. PROTONIX [Concomitant]
  17. MULTI-VITAMINS [Concomitant]

REACTIONS (10)
  - DEHYDRATION [None]
  - HAEMATOCHEZIA [None]
  - HAEMATOCRIT DECREASED [None]
  - HAEMOGLOBIN DECREASED [None]
  - HYPOKALAEMIA [None]
  - LEUKOPENIA [None]
  - NAUSEA [None]
  - PLATELET COUNT DECREASED [None]
  - RECTAL HAEMORRHAGE [None]
  - VOMITING [None]
